FAERS Safety Report 8288448-9 (Version None)
Quarter: 2012Q2

REPORT INFORMATION
  Report Type: 
  Country: None (occurrence: None)
  Receive Date: 20120416
  Receipt Date: 20120403
  Transmission Date: 20120825
  Serious: Yes (Hospitalization, Other)
  Sender: FDA-Public Use
  Company Number: IT-ROCHE-1056005

PATIENT
  Sex: Male

DRUGS (10)
  1. SPORANOX [Concomitant]
     Route: 048
     Dates: start: 20111215, end: 20120125
  2. BACTRIM [Concomitant]
     Route: 048
     Dates: start: 20111215, end: 20120125
  3. LAMIVUDINE [Concomitant]
     Route: 048
     Dates: start: 20111215, end: 20120125
  4. VINCRISTINE [Suspect]
     Indication: FOLLICLE CENTRE LYMPHOMA, FOLLICULAR GRADE I, II, III STAGE IV
     Dosage: DRUG REPORTED AS VINCRISTINA PFIZER ITALIA
     Route: 042
     Dates: start: 20111215, end: 20120105
  5. MABTHERA [Suspect]
     Indication: FOLLICLE CENTRE LYMPHOMA, FOLLICULAR GRADE I, II, III STAGE IV
     Route: 042
     Dates: start: 20111222, end: 20120104
  6. DOXORUBICIN HCL [Suspect]
     Indication: FOLLICLE CENTRE LYMPHOMA, FOLLICULAR GRADE I, II, III STAGE IV
     Route: 042
     Dates: start: 20111215, end: 20120105
  7. MYELOSTIM [Suspect]
     Indication: NEUTROPENIA
     Dosage: FORM: 33.6 MIU PRE-FILLED SYRINGE, DRUG REPORTED AS MYLOSTIM
     Route: 058
     Dates: start: 20120110, end: 20120115
  8. PREDNISONE TAB [Concomitant]
     Route: 048
     Dates: start: 20120106, end: 20120116
  9. LEVOFLOXACIN [Concomitant]
     Route: 048
     Dates: start: 20120111, end: 20120118
  10. CYCLOPHOSPHAMIDE [Suspect]
     Indication: FOLLICLE CENTRE LYMPHOMA, FOLLICULAR GRADE I, II, III STAGE IV
     Route: 042
     Dates: start: 20111215, end: 20120105

REACTIONS (6)
  - DIARRHOEA [None]
  - ORAL DISCOMFORT [None]
  - ASPARTATE AMINOTRANSFERASE INCREASED [None]
  - ALANINE AMINOTRANSFERASE INCREASED [None]
  - ABDOMINAL DISTENSION [None]
  - BONE PAIN [None]
